FAERS Safety Report 7090444-4 (Version None)
Quarter: 2010Q4

REPORT INFORMATION
  Report Type: 
  Country: None (occurrence: None)
  Receive Date: 20101109
  Receipt Date: 20100601
  Transmission Date: 20110411
  Serious: Yes (Hospitalization)
  Sender: FDA-Public Use
  Company Number: US-BAYER-201025731NA

PATIENT
  Age: 28 Year
  Sex: Female
  Weight: 81 kg

DRUGS (5)
  1. YASMIN [Suspect]
     Indication: CONTRACEPTION
     Route: 048
     Dates: start: 20050201, end: 20081130
  2. LEVSIN [Concomitant]
     Indication: DUODENITIS
     Dosage: EVERY 4 HOURS AS NEEDED
  3. ALLEGRA [Concomitant]
  4. MULTI-VIT [Concomitant]
  5. ASCORBIC ACID [Concomitant]

REACTIONS (9)
  - ABDOMINAL PAIN [None]
  - ABDOMINAL PAIN UPPER [None]
  - BILIARY COLIC [None]
  - CHOLECYSTITIS CHRONIC [None]
  - CHOLELITHIASIS [None]
  - DIARRHOEA [None]
  - GALLBLADDER CHOLESTEROLOSIS [None]
  - NAUSEA [None]
  - VOMITING [None]
